FAERS Safety Report 14348745 (Version 1)
Quarter: 2018Q1

REPORT INFORMATION
  Report Type: Spontaneous
  Country: CA (occurrence: CA)
  Receive Date: 20180104
  Receipt Date: 20180104
  Transmission Date: 20180509
  Serious: Yes (Hospitalization)
  Sender: FDA-Public Use
  Company Number: CA-RICON PHARMA, LLC-RIC201712-000748

PATIENT
  Age: 36 Year
  Sex: Female

DRUGS (2)
  1. LIDOCAINE. [Suspect]
     Active Substance: LIDOCAINE
     Route: 037
  2. EPINEPHRINE. [Suspect]
     Active Substance: EPINEPHRINE
     Dosage: 5 ?G/ML

REACTIONS (16)
  - Obstructive airways disorder [Recovered/Resolved]
  - Quadriparesis [Recovered/Resolved]
  - Dyspnoea [Recovered/Resolved]
  - Cranial nerve palsies multiple [Recovered/Resolved]
  - Ophthalmoplegia [Recovered/Resolved]
  - Product use in unapproved indication [Unknown]
  - Respiratory failure [Recovered/Resolved]
  - Fatigue [Unknown]
  - Speech disorder [Recovered/Resolved]
  - Stridor [Recovered/Resolved]
  - Cyanosis [Recovered/Resolved]
  - Paraesthesia [Recovered/Resolved]
  - Malaise [Recovered/Resolved]
  - Anaesthesia [Recovered/Resolved]
  - Mydriasis [Recovered/Resolved]
  - Eyelid ptosis [Recovered/Resolved]
